FAERS Safety Report 5058328-0 (Version None)
Quarter: 2006Q3

REPORT INFORMATION
  Report Type: 
  Country: None (occurrence: None)
  Receive Date: 20060721
  Receipt Date: 20060718
  Transmission Date: 20061208
  Serious: Yes (Death)
  Sender: FDA-Public Use
  Company Number: US-KINGPHARMUSA00001-K200600927

PATIENT
  Age: 39 Year
  Sex: Male

DRUGS (3)
  1. ALTACE [Suspect]
  2. FELODIPINE [Suspect]
  3. CLONIDINE [Concomitant]
     Indication: HYPERTENSION
     Dosage: 150 UG, UNK
     Route: 048
     Dates: start: 20060501, end: 20060525

REACTIONS (2)
  - CEREBRAL HAEMORRHAGE [None]
  - TREATMENT NONCOMPLIANCE [None]
